FAERS Safety Report 8267383-6 (Version None)
Quarter: 2012Q2

REPORT INFORMATION
  Report Type: 
  Country: None (occurrence: None)
  Receive Date: 20120409
  Receipt Date: 20120402
  Transmission Date: 20120825
  Serious: Yes (Hospitalization, Other)
  Sender: FDA-Public Use
  Company Number: PHHY2012FR028742

PATIENT
  Age: 76 Year
  Sex: Female
  Weight: 74 kg

DRUGS (13)
  1. PREVISCAN [Concomitant]
  2. LEVOTHYROXINE SODIUM [Concomitant]
     Dates: start: 20111202, end: 20120402
  3. CORDARONE [Concomitant]
  4. ZOLEDRONOC ACID [Suspect]
     Indication: OSTEOPOROSIS
     Route: 042
     Dates: start: 20111201
  5. NIDREL [Concomitant]
     Dosage: UNK
     Dates: end: 20120101
  6. FOLIC ACID [Concomitant]
  7. COLCHICINE [Concomitant]
  8. POTASSIUM CHLORIDE [Concomitant]
     Dates: end: 20120101
  9. FLECAINIDE ACETATE [Concomitant]
     Dosage: UNK
     Dates: end: 20120101
  10. ALLOPURINOL [Concomitant]
  11. VALSARTAN  AND HYDROCHLOROTHIAZIDE [Concomitant]
     Dates: end: 20120101
  12. PANTOPRAZOLE [Concomitant]
  13. LERCANIDIPINE [Concomitant]

REACTIONS (7)
  - GASTRIC HAEMORRHAGE [None]
  - TOXICITY TO VARIOUS AGENTS [None]
  - MALNUTRITION [None]
  - DEHYDRATION [None]
  - BLOOD PRESSURE DECREASED [None]
  - WEIGHT DECREASED [None]
  - GASTROINTESTINAL ULCER [None]
